FAERS Safety Report 7082498-6 (Version None)
Quarter: 2010Q4

REPORT INFORMATION
  Report Type: 
  Country: None (occurrence: None)
  Receive Date: 20101104
  Receipt Date: 20101022
  Transmission Date: 20110411
  Serious: Yes (Hospitalization)
  Sender: FDA-Public Use
  Company Number: GB-RANBAXY-2010R1-38366

PATIENT

DRUGS (2)
  1. ACYCLOVIR [Suspect]
     Indication: VIITH NERVE PARALYSIS
     Dosage: 200 MG, 5/1 DAYS.
     Route: 048
     Dates: start: 20100907, end: 20100908
  2. PREDNISOLONE [Concomitant]
     Indication: VIITH NERVE PARALYSIS
     Dosage: UNK
     Route: 065

REACTIONS (4)
  - ABDOMINAL PAIN [None]
  - ACIDOSIS [None]
  - INTESTINAL OBSTRUCTION [None]
  - VOMITING [None]
